FAERS Safety Report 5597372-1 (Version None)
Quarter: 2008Q1

REPORT INFORMATION
  Report Type: 
  Country: None (occurrence: None)
  Receive Date: 20080121
  Receipt Date: 20080115
  Transmission Date: 20080703
  Serious: Yes (Death)
  Sender: FDA-Public Use
  Company Number: JP-NOVOPROD-271149

PATIENT

DRUGS (2)
  1. NOVOSEVEN [Suspect]
     Indication: HAEMOPHILIA
     Dosage: 4.8 MG, UNK
     Route: 042
     Dates: start: 20060501, end: 20061201
  2. FEIBA [Concomitant]
     Route: 042

REACTIONS (1)
  - CEREBELLAR HAEMORRHAGE [None]
